FAERS Safety Report 7815831-5 (Version None)
Quarter: 2011Q4

REPORT INFORMATION
  Report Type: 
  Country: None (occurrence: None)
  Receive Date: 20111014
  Receipt Date: 20111010
  Transmission Date: 20120403
  Serious: Yes (Other)
  Sender: FDA-Public Use
  Company Number: US-SHIONOGI USA, INC-2010000077

PATIENT

DRUGS (1)
  1. ADRENACLICK [Suspect]
     Indication: HYPERSENSITIVITY
     Dosage: 0.15 MG, PRN
     Dates: start: 20101123, end: 20101123

REACTIONS (2)
  - DEVICE MALFUNCTION [None]
  - PRODUCT QUALITY ISSUE [None]
